FAERS Safety Report 7865949-6 (Version None)
Quarter: 2011Q4

REPORT INFORMATION
  Report Type: 
  Country: None (occurrence: None)
  Receive Date: 20111028
  Receipt Date: 20110324
  Transmission Date: 20120403
  Serious: No
  Sender: FDA-Public Use
  Company Number: US-GLAXOSMITHKLINE-A0919834A

PATIENT
  Age: 81 Year
  Sex: Male

DRUGS (4)
  1. LIPITOR [Concomitant]
  2. ALBUTEROL [Concomitant]
  3. INHALER [Concomitant]
  4. ADVAIR DISKUS 100/50 [Suspect]
     Indication: CHRONIC OBSTRUCTIVE PULMONARY DISEASE
     Dosage: 1PUFF TWICE PER DAY
     Route: 055
     Dates: start: 20070101

REACTIONS (2)
  - LIP DISORDER [None]
  - TONGUE DISORDER [None]
